FAERS Safety Report 9486474 (Version 1)
Quarter: 2013Q3

REPORT INFORMATION
  Report Type: Report from Study
  Country: US (occurrence: US)
  Receive Date: 20130829
  Receipt Date: 20130829
  Transmission Date: 20140515
  Serious: Yes (Death, Hospitalization)
  Sender: FDA-Public Use
  Company Number: US-ABBOTT-13P-163-1139248-00

PATIENT
  Age: 97 Year
  Sex: Male
  Weight: 66.28 kg

DRUGS (16)
  1. ZEMPLAR [Suspect]
     Indication: PARATHYROID DISORDER
     Dosage: MWF
  2. COLACE [Concomitant]
     Indication: CONSTIPATION
  3. FUROSEMIDE [Concomitant]
     Indication: SWELLING
  4. IMDUR [Concomitant]
     Indication: PROPHYLAXIS
  5. IMDUR [Concomitant]
     Indication: CHEST PAIN
  6. LEVOTHYROXINE [Concomitant]
     Indication: HYPOTHYROIDISM
  7. LEVSIN [Concomitant]
     Indication: ABDOMINAL PAIN
  8. LOSARTAN POTASSIUM [Concomitant]
     Indication: HYPERTENSION
  9. MIRALAX [Concomitant]
     Indication: CONSTIPATION
  10. NITROSTAT [Concomitant]
     Indication: CHEST PAIN
  11. SPIRIVA [Concomitant]
     Indication: DYSPNOEA
  12. TRAMADOL [Concomitant]
     Indication: PAIN
  13. TYLENOL [Concomitant]
     Indication: PAIN
  14. MULTIVITAMINS [Concomitant]
     Indication: VITAMIN SUPPLEMENTATION
  15. ASPIRIN [Concomitant]
     Indication: ANTICOAGULANT THERAPY
  16. OMEPRAZOLE [Concomitant]
     Indication: GASTROOESOPHAGEAL REFLUX DISEASE

REACTIONS (6)
  - Aortic stenosis [Fatal]
  - Pulmonary oedema [Fatal]
  - Asthenia [Not Recovered/Not Resolved]
  - Hypophagia [Not Recovered/Not Resolved]
  - Dyspnoea [Not Recovered/Not Resolved]
  - Cough [Not Recovered/Not Resolved]
